FAERS Safety Report 22604840 (Version 1)
Quarter: 2023Q2

REPORT INFORMATION
  Report Type: Spontaneous
  Country: US (occurrence: US)
  Receive Date: 20230615
  Receipt Date: 20230615
  Transmission Date: 20230721
  Serious: No
  Sender: FDA-Public Use
  Company Number: US-THEA-2022001420

PATIENT
  Sex: Female

DRUGS (2)
  1. AZASITE [Suspect]
     Active Substance: AZITHROMYCIN MONOHYDRATE
     Indication: Conjunctivitis
     Dosage: BOTH EYES
     Route: 047
  2. Artificial Tears [Concomitant]

REACTIONS (2)
  - Visual impairment [Unknown]
  - Wrong technique in product usage process [Unknown]
